FAERS Safety Report 6117938-X (Version None)
Quarter: 2009Q1

REPORT INFORMATION
  Report Type: 
  Country: None (occurrence: None)
  Receive Date: 20090314
  Receipt Date: 20090130
  Transmission Date: 20090719
  Serious: No
  Sender: FDA-Public Use
  Company Number: US-ABBOTT-09P-163-0501336-00

PATIENT
  Sex: Male
  Weight: 93.07 kg

DRUGS (5)
  1. HUMIRA [Suspect]
     Indication: CROHN'S DISEASE
     Route: 058
     Dates: start: 20080201, end: 20081001
  2. HUMIRA [Suspect]
     Indication: RHEUMATOID ARTHRITIS
     Route: 058
     Dates: start: 20081001
  3. ENTOCORT EC [Concomitant]
     Indication: CROHN'S DISEASE
  4. PERCOCET [Concomitant]
     Indication: PAIN
  5. IBUPROFEN [Concomitant]
     Indication: PAIN

REACTIONS (6)
  - CROHN'S DISEASE [None]
  - DRUG INEFFECTIVE [None]
  - INJECTION SITE HAEMATOMA [None]
  - MASS [None]
  - MELANOCYTIC NAEVUS [None]
  - PAIN [None]
